FAERS Safety Report 10534838 (Version 1)
Quarter: 2014Q4

REPORT INFORMATION
  Report Type: Spontaneous
  Country: FR (occurrence: FR)
  Receive Date: 20141022
  Receipt Date: 20141022
  Transmission Date: 20150529
  Serious: Yes (Life-Threatening, Other)
  Sender: FDA-Public Use
  Company Number: FR-ASTRAZENECA-2014SE78439

PATIENT
  Age: 19165 Day
  Sex: Female

DRUGS (3)
  1. LOVENOX [Suspect]
     Active Substance: ENOXAPARIN SODIUM
     Indication: MYOCARDIAL INFARCTION
     Route: 058
     Dates: start: 20140819, end: 20140821
  2. BRILIQUE [Suspect]
     Active Substance: TICAGRELOR
     Indication: MYOCARDIAL INFARCTION
     Route: 048
     Dates: start: 20140819, end: 20140821
  3. ASPEGIC [Suspect]
     Active Substance: ASPIRIN DL-LYSINE
     Indication: MYOCARDIAL INFARCTION
     Route: 048
     Dates: start: 20140819, end: 20140821

REACTIONS (3)
  - Cerebral haemorrhage [Not Recovered/Not Resolved]
  - Coma [Unknown]
  - Pupils unequal [Unknown]

NARRATIVE: CASE EVENT DATE: 20140820
